FAERS Safety Report 8160345-9 (Version None)
Quarter: 2012Q1

REPORT INFORMATION
  Report Type: 
  Country: None (occurrence: None)
  Receive Date: 20120223
  Receipt Date: 20120215
  Transmission Date: 20120608
  Serious: Yes (Hospitalization)
  Sender: FDA-Public Use
  Company Number: US-BAYER-2012-016329

PATIENT
  Sex: Female

DRUGS (1)
  1. ASPIRIN [Suspect]
     Indication: ANALGESIC THERAPY
     Dosage: UNK
     Route: 048
     Dates: start: 20090101

REACTIONS (6)
  - DRUG INEFFECTIVE [None]
  - PULMONARY EMBOLISM [None]
  - CARDIAC ARREST [None]
  - THROMBOSIS [None]
  - PULSE ABSENT [None]
  - UNRESPONSIVE TO STIMULI [None]
